FAERS Safety Report 7365931-1 (Version None)
Quarter: 2011Q1

REPORT INFORMATION
  Report Type: 
  Country: None (occurrence: None)
  Receive Date: 20110322
  Receipt Date: 20110222
  Transmission Date: 20110831
  Serious: Yes (Hospitalization, Other)
  Sender: FDA-Public Use
  Company Number: US-BAYER-201027084NA

PATIENT
  Sex: Female
  Weight: 46.259 kg

DRUGS (5)
  1. YAZ [Suspect]
     Indication: PRODUCT USED FOR UNKNOWN INDICATION
     Route: 048
     Dates: start: 20070101
  2. KEFLEX [Concomitant]
     Dosage: 250 MG, QID
     Dates: start: 20070405
  3. ORAL CONTRACEPTIVE NOS [Concomitant]
  4. ZOSYN [Concomitant]
     Dosage: UNK
     Dates: start: 20070611
  5. KLOR-CON [Concomitant]

REACTIONS (4)
  - GALLBLADDER DISORDER [None]
  - ABDOMINAL PAIN UPPER [None]
  - CHOLECYSTITIS CHRONIC [None]
  - CHOLELITHIASIS [None]
